FAERS Safety Report 16199063 (Version 2)
Quarter: 2019Q2

REPORT INFORMATION
  Report Type: Spontaneous
  Country: US (occurrence: US)
  Receive Date: 20190415
  Receipt Date: 20190417
  Transmission Date: 20190711
  Serious: Yes (Other)
  Sender: FDA-Public Use
  Company Number: US-FRESENIUS MEDICAL CARE RENAL THERAPIES GROUP-FMC-1904-000441

PATIENT
  Age: 69 Year
  Sex: Female
  Weight: 92.7 kg

DRUGS (1)
  1. DELFLEX [Suspect]
     Active Substance: CALCIUM CHLORIDE\DEXTROSE\MAGNESIUM CHLORIDE\SODIUM CHLORIDE\SODIUM LACTATE
     Indication: END STAGE RENAL DISEASE
     Dosage: 5 OVERNIGHT CYCLES OF 2500 ML, A DWELL TIME OF 1 HOUR, 17 MINUTES, AND LAST FILL OF 1000 ML
     Route: 033

REACTIONS (1)
  - Peritonitis [Recovered/Resolved]

NARRATIVE: CASE EVENT DATE: 20190408
